FAERS Safety Report 9885990 (Version 2)
Quarter: 2014Q1

REPORT INFORMATION
  Report Type: Spontaneous
  Country: ES (occurrence: ES)
  Receive Date: 20140210
  Receipt Date: 20140213
  Transmission Date: 20141002
  Serious: Yes (Death)
  Sender: FDA-Public Use
  Company Number: ES-GLAXOSMITHKLINE-B0966757A

PATIENT
  Age: 18 Year
  Sex: Female
  Weight: 68 kg

DRUGS (6)
  1. SERETIDE [Suspect]
     Indication: ASTHMA
     Route: 055
     Dates: start: 2010
  2. FLIXOTIDE [Suspect]
     Indication: ASTHMA
     Dosage: 500MCG PER DAY
     Route: 055
     Dates: start: 2011
  3. XOLAIR [Suspect]
     Indication: ASTHMA
     Dosage: 150MG MONTHLY
     Route: 058
     Dates: start: 201209, end: 20131220
  4. SINGULAIR [Suspect]
     Indication: ASTHMA
     Dosage: 10MG PER DAY
     Route: 048
     Dates: start: 2010
  5. TERBASMIN [Suspect]
     Indication: ASTHMA
     Dosage: 500MCG PER DAY
     Route: 055
     Dates: start: 2009
  6. DACORTIN [Suspect]
     Indication: ASTHMA
     Route: 048

REACTIONS (1)
  - Sudden death [Fatal]
